FAERS Safety Report 11327779 (Version 2)
Quarter: 2015Q3

REPORT INFORMATION
  Report Type: Spontaneous
  Country: US (occurrence: US)
  Receive Date: 20150731
  Receipt Date: 20150828
  Transmission Date: 20151125
  Serious: Yes (Other)
  Sender: FDA-Public Use
  Company Number: US-ASTRAZENECA-2015SE72738

PATIENT
  Age: 52 Year
  Sex: Female
  Weight: 72.6 kg

DRUGS (16)
  1. SYMBICORT [Suspect]
     Active Substance: BUDESONIDE\FORMOTEROL FUMARATE DIHYDRATE
     Indication: WHEEZING
     Dosage: 80/4.5MCG 2 PUFFS TWO TIMES A DAY
     Route: 055
     Dates: start: 201408, end: 20150727
  2. PROTONIX [Concomitant]
     Active Substance: PANTOPRAZOLE SODIUM
     Indication: GASTROOESOPHAGEAL REFLUX DISEASE
  3. LUVOX [Concomitant]
     Active Substance: FLUVOXAMINE MALEATE
     Indication: OBSESSIVE-COMPULSIVE DISORDER
  4. DYMISTA [Concomitant]
     Active Substance: AZELASTINE HYDROCHLORIDE\FLUTICASONE PROPIONATE
     Indication: RHINITIS ALLERGIC
     Dosage: 1 SPRAY BID
     Route: 045
     Dates: start: 20120130
  5. SYMBICORT [Suspect]
     Active Substance: BUDESONIDE\FORMOTEROL FUMARATE DIHYDRATE
     Indication: DYSPNOEA
     Dosage: 160 2 PUFFS TWO TIMES A DAY
     Route: 055
  6. SYMBICORT [Suspect]
     Active Substance: BUDESONIDE\FORMOTEROL FUMARATE DIHYDRATE
     Indication: BRONCHITIS
     Dosage: 80/4.5MCG 2 PUFFS TWO TIMES A DAY
     Route: 055
     Dates: start: 201408, end: 20150727
  7. SYMBICORT [Suspect]
     Active Substance: BUDESONIDE\FORMOTEROL FUMARATE DIHYDRATE
     Indication: DYSPNOEA
     Dosage: 80/4.5MCG 2 PUFFS TWO TIMES A DAY
     Route: 055
     Dates: start: 201408, end: 20150727
  8. SYMBICORT [Suspect]
     Active Substance: BUDESONIDE\FORMOTEROL FUMARATE DIHYDRATE
     Indication: WHEEZING
     Dosage: 160 2 PUFFS TWO TIMES A DAY
     Route: 055
  9. LUVOX [Concomitant]
     Active Substance: FLUVOXAMINE MALEATE
     Indication: OBSESSIVE-COMPULSIVE DISORDER
  10. SYMBICORT [Suspect]
     Active Substance: BUDESONIDE\FORMOTEROL FUMARATE DIHYDRATE
     Indication: BRONCHITIS
     Dosage: 80/4.5MCG, ONE PUFF, AS REQUIRED
     Route: 055
     Dates: start: 2014
  11. SYMBICORT [Suspect]
     Active Substance: BUDESONIDE\FORMOTEROL FUMARATE DIHYDRATE
     Indication: BRONCHITIS
     Dosage: 160 2 PUFFS TWO TIMES A DAY
     Route: 055
  12. SYMBICORT [Suspect]
     Active Substance: BUDESONIDE\FORMOTEROL FUMARATE DIHYDRATE
     Indication: COUGH
     Dosage: 80/4.5MCG, ONE PUFF, AS REQUIRED
     Route: 055
     Dates: start: 2014
  13. SYMBICORT [Suspect]
     Active Substance: BUDESONIDE\FORMOTEROL FUMARATE DIHYDRATE
     Indication: WHEEZING
     Dosage: 80/4.5MCG, ONE PUFF, AS REQUIRED
     Route: 055
     Dates: start: 2014
  14. SYMBICORT [Suspect]
     Active Substance: BUDESONIDE\FORMOTEROL FUMARATE DIHYDRATE
     Indication: COUGH
     Dosage: 80/4.5MCG 2 PUFFS TWO TIMES A DAY
     Route: 055
     Dates: start: 201408, end: 20150727
  15. SYMBICORT [Suspect]
     Active Substance: BUDESONIDE\FORMOTEROL FUMARATE DIHYDRATE
     Indication: COUGH
     Dosage: 160 2 PUFFS TWO TIMES A DAY
     Route: 055
  16. SYMBICORT [Suspect]
     Active Substance: BUDESONIDE\FORMOTEROL FUMARATE DIHYDRATE
     Indication: DYSPNOEA
     Dosage: 80/4.5MCG, ONE PUFF, AS REQUIRED
     Route: 055
     Dates: start: 2014

REACTIONS (26)
  - Pain in extremity [Recovering/Resolving]
  - Dyspnoea [Unknown]
  - Sciatica [Unknown]
  - Intentional product misuse [Unknown]
  - Balance disorder [Not Recovered/Not Resolved]
  - Fatigue [Not Recovered/Not Resolved]
  - Pain in extremity [Not Recovered/Not Resolved]
  - Muscle spasms [Not Recovered/Not Resolved]
  - Vitamin B12 deficiency [Unknown]
  - Hepatitis [Unknown]
  - Feeling abnormal [Not Recovered/Not Resolved]
  - Osteoporosis [Unknown]
  - Coeliac disease [Unknown]
  - Alopecia [Unknown]
  - Product use issue [Recovered/Resolved]
  - Abdominal pain [Not Recovered/Not Resolved]
  - Osteopenia [Unknown]
  - Sinusitis [Unknown]
  - Off label use [Recovered/Resolved]
  - Anaemia [Unknown]
  - Vitamin D deficiency [Unknown]
  - Rhinitis allergic [Unknown]
  - Nasal congestion [Unknown]
  - Haematuria [Unknown]
  - Rhinorrhoea [Unknown]
  - Headache [Not Recovered/Not Resolved]

NARRATIVE: CASE EVENT DATE: 2011
